FAERS Safety Report 4909046-8 (Version None)
Quarter: 2006Q1

REPORT INFORMATION
  Report Type: 
  Country: None (occurrence: None)
  Receive Date: 20060209
  Receipt Date: 20060209
  Transmission Date: 20060701
  Serious: Yes (Hospitalization)
  Sender: FDA-Public Use
  Company Number: None

PATIENT
  Sex: Female
  Weight: 73.4827 kg

DRUGS (3)
  1. LAMOTRIGINE [Suspect]
     Indication: BIPOLAR DISORDER
     Dosage: 50 MG QD ORAL
     Route: 048
     Dates: start: 20050727, end: 20050812
  2. CALCIUM GLUCONATE [Concomitant]
  3. BAND-AID ANTI-ITCH GEL (CAMPHOR 0.45%) [Concomitant]

REACTIONS (3)
  - AUTOIMMUNE HEPATITIS [None]
  - HEPATITIS [None]
  - PYREXIA [None]
